FAERS Safety Report 23008420 (Version 2)
Quarter: 2023Q4

REPORT INFORMATION
  Report Type: Spontaneous
  Country: GB (occurrence: None)
  Receive Date: 20230929
  Receipt Date: 20231103
  Transmission Date: 20240109
  Serious: Yes (Other)
  Sender: FDA-Public Use
  Company Number: GB-ROCHE-3428542

PATIENT
  Age: 89 Year
  Sex: Female

DRUGS (4)
  1. VABYSMO [Suspect]
     Active Substance: FARICIMAB\FARICIMAB-SVOA
     Indication: Neovascular age-related macular degeneration
     Dosage: ON 18/JUL/2023, RECEIVED MOST RECENT DOSE OF FARICIMAB.
     Route: 050
     Dates: start: 20230118
  2. VABYSMO [Concomitant]
     Active Substance: FARICIMAB\FARICIMAB-SVOA
     Indication: Neovascular age-related macular degeneration
     Dosage: FARICIMAB FELLOW EYE TREATMENT. ?ON 09/JUN/2023, RECEIVED MOST RECENT DOSE OF FARICIMAB FELLOW EYE T
     Route: 050
     Dates: start: 20230210
  3. EYLEA [Concomitant]
     Active Substance: AFLIBERCEPT
     Indication: Neovascular age-related macular degeneration
     Dosage: FOR RIGHT EYE.
     Route: 050
     Dates: start: 20210929, end: 20221221
  4. EYLEA [Concomitant]
     Active Substance: AFLIBERCEPT
     Dosage: LEFT EYE
     Route: 050
     Dates: start: 20210512, end: 20230106

REACTIONS (2)
  - Eye inflammation [Unknown]
  - Endophthalmitis [Unknown]
